FAERS Safety Report 7573126-1 (Version None)
Quarter: 2011Q2

REPORT INFORMATION
  Report Type: 
  Country: None (occurrence: None)
  Receive Date: 20110627
  Receipt Date: 20110621
  Transmission Date: 20111010
  Serious: No
  Sender: FDA-Public Use
  Company Number: US-PFIZER INC-2011115515

PATIENT
  Sex: Male
  Weight: 54.422 kg

DRUGS (2)
  1. PLAVIX [Suspect]
  2. CHANTIX [Suspect]
     Indication: SMOKING CESSATION THERAPY
     Dosage: 1 MG, 1X/DAY
     Route: 048
     Dates: start: 20110512, end: 20110525

REACTIONS (2)
  - WHITE BLOOD CELL COUNT DECREASED [None]
  - CHROMATURIA [None]
